FAERS Safety Report 13846618 (Version 1)
Quarter: 2017Q3

REPORT INFORMATION
  Report Type: Spontaneous
  Country: US (occurrence: US)
  Receive Date: 20170808
  Receipt Date: 20170808
  Transmission Date: 20171127
  Serious: No
  Sender: FDA-Public Use
  Company Number: US-SA-2017SA083332

PATIENT
  Sex: Female

DRUGS (1)
  1. XYZAL ALLERGY 24HR [Suspect]
     Active Substance: LEVOCETIRIZINE DIHYDROCHLORIDE
     Route: 065

REACTIONS (9)
  - Feeling abnormal [Unknown]
  - Dyspnoea [Unknown]
  - Insomnia [Unknown]
  - Oropharyngeal pain [Unknown]
  - Abnormal dreams [Unknown]
  - Gait disturbance [Unknown]
  - Pain [Unknown]
  - Dizziness [Unknown]
  - Somnolence [Unknown]
